FAERS Safety Report 8887125 (Version 1)
Quarter: 2012Q4

REPORT INFORMATION
  Report Type: 
  Country: US (occurrence: US)
  Receive Date: 20121105
  Receipt Date: 20121105
  Transmission Date: 20130627
  Serious: Yes (Other)
  Sender: FDA-Public Use
  Company Number: US-ROCHE-1150505

PATIENT

DRUGS (1)
  1. PEG-INTERFERON ALFA 2A [Suspect]
     Indication: HAEMATOPOIETIC NEOPLASM
     Dosage: median starting dose of 80 micrograms/week
     Route: 058

REACTIONS (14)
  - Fatigue [Unknown]
  - Myalgia [Unknown]
  - Stomatitis [Unknown]
  - Thyroiditis [Unknown]
  - Thrombocytopenia [Unknown]
  - Anaemia [Unknown]
  - Leukopenia [Unknown]
  - Liver function test abnormal [Unknown]
  - Dermatitis allergic [Unknown]
  - Nausea [Unknown]
  - Affective disorder [Unknown]
  - Headache [Unknown]
  - Alopecia [Unknown]
  - Cough [Unknown]
